FAERS Safety Report 4309688-7 (Version None)
Quarter: 2004Q1

REPORT INFORMATION
  Report Type: 
  Country: None (occurrence: None)
  Receive Date: 20040302
  Receipt Date: 20040217
  Transmission Date: 20041129
  Serious: Yes (Other)
  Sender: FDA-Public Use
  Company Number: 2003024064

PATIENT
  Sex: Male
  Weight: 66.2252 kg

DRUGS (5)
  1. LIPITOR [Suspect]
     Indication: BLOOD CHOLESTEROL INCREASED
     Dosage: (DAILY), ORAL
     Route: 048
     Dates: start: 19970813
  2. NORVASC [Suspect]
     Indication: BLOOD PRESSURE INCREASED
     Dosage: (DAILY), ORAL
     Route: 048
     Dates: start: 19951113
  3. CELECOXIB (CELECOXIB) [Suspect]
     Indication: ARTHRITIS
     Dosage: 200 MG, ORAL
     Route: 048
  4. FLURBIPROFEN [Suspect]
     Indication: ARTHRITIS
  5. TAMSULOSIN HYDROCHLORIDE (TAMSULOSIN HYDROCHLORIDE) [Concomitant]

REACTIONS (7)
  - ARTHRITIS [None]
  - BLOOD PRESSURE INCREASED [None]
  - BLOOD TRIGLYCERIDES INCREASED [None]
  - DRUG INEFFECTIVE [None]
  - PROSTATE CANCER [None]
  - STOMACH DISCOMFORT [None]
  - WEIGHT INCREASED [None]
